FAERS Safety Report 7762071 (Version 4)
Quarter: 2013Q2

REPORT INFORMATION
  Report Type: Spontaneous
  Country: US (occurrence: US)
  Receive Date: 20110117
  Receipt Date: 20130412
  Transmission Date: 20140414
  Serious: Yes (Hospitalization)
  Sender: FDA-Public Use
  Company Number: US-BIOGENIDEC-2011BI001010

PATIENT
  Age: 41 Year
  Sex: Male

DRUGS (2)
  1. TYSABRI [Suspect]
     Indication: MULTIPLE SCLEROSIS
     Route: 042
     Dates: start: 20060913
  2. PAIN MEDICATION (NOS) [Concomitant]
     Indication: BACK PAIN

REACTIONS (6)
  - Drug specific antibody present [Unknown]
  - Spinal column stenosis [Recovered/Resolved]
  - Intervertebral disc disorder [Recovered/Resolved]
  - Multiple sclerosis relapse [Unknown]
  - Muscle atrophy [Recovered/Resolved]
  - Muscle spasticity [Recovered/Resolved]
